FAERS Safety Report 16200942 (Version 2)
Quarter: 2019Q4

REPORT INFORMATION
  Report Type: Report from Study
  Country: None (occurrence: CO)
  Receive Date: 20190416
  Receipt Date: 20191112
  Transmission Date: 20200122
  Serious: Yes (Hospitalization, Other)
  Sender: FDA-Public Use
  Company Number: CO-ABBVIE-19K-036-2745840-00

PATIENT
  Age: 57 Year
  Sex: Female
  Weight: 63 kg

DRUGS (2)
  1. HUMIRA [Suspect]
     Active Substance: ADALIMUMAB
     Indication: RHEUMATOID ARTHRITIS
     Route: 058
     Dates: start: 20130527
  2. HUMIRA [Suspect]
     Active Substance: ADALIMUMAB
     Dosage: HUMIRA AC
     Route: 058

REACTIONS (11)
  - Chest pain [Recovering/Resolving]
  - Abdominal pain upper [Recovering/Resolving]
  - Urinary tract infection [Recovering/Resolving]
  - Infection [Recovering/Resolving]
  - Bladder prolapse [Recovering/Resolving]
  - Bladder disorder [Recovering/Resolving]
  - Musculoskeletal chest pain [Recovering/Resolving]
  - Urinary tract infection [Recovered/Resolved]
  - Bladder operation [Recovering/Resolving]
  - Medical device pain [Unknown]
  - Pruritus allergic [Recovering/Resolving]

NARRATIVE: CASE EVENT DATE: 2018
